FAERS Safety Report 5925326-1 (Version None)
Quarter: 2008Q4

REPORT INFORMATION
  Report Type: 
  Country: None (occurrence: None)
  Receive Date: 20081020
  Receipt Date: 20081020
  Transmission Date: 20090506
  Serious: Yes (Other)
  Sender: FDA-Public Use
  Company Number: None

PATIENT
  Age: 39 Year
  Sex: Male
  Weight: 77.1115 kg

DRUGS (1)
  1. CIPRO [Suspect]
     Indication: PROSTATITIS
     Dosage: 500 MG TWICE DAILY PO
     Route: 048
     Dates: start: 20050105, end: 20050305

REACTIONS (7)
  - ALOPECIA [None]
  - ARTHRALGIA [None]
  - GASTROINTESTINAL DISORDER [None]
  - MUSCULOSKELETAL PAIN [None]
  - MYODESOPSIA [None]
  - NERVOUS SYSTEM DISORDER [None]
  - UNEVALUABLE EVENT [None]
